FAERS Safety Report 5051293-1 (Version None)
Quarter: 2006Q3

REPORT INFORMATION
  Report Type: 
  Country: None (occurrence: None)
  Receive Date: 20060714
  Receipt Date: 20060705
  Transmission Date: 20061208
  Serious: Yes (Other)
  Sender: FDA-Public Use
  Company Number: 2006UW14123

PATIENT
  Age: 74 Year
  Sex: Female

DRUGS (4)
  1. SEROQUEL [Suspect]
     Indication: MENTAL DISORDER
     Dosage: 7 PM
     Route: 048
     Dates: start: 20060301
  2. REMERON [Suspect]
  3. CLONAZEPAM [Concomitant]
  4. ALTACE [Concomitant]
     Indication: HYPERTENSION

REACTIONS (3)
  - BALANCE DISORDER [None]
  - DIZZINESS [None]
  - MEMORY IMPAIRMENT [None]
